FAERS Safety Report 9785196 (Version 2)
Quarter: 2014Q1

REPORT INFORMATION
  Report Type: Report from Study
  Country: DE (occurrence: DE)
  Receive Date: 20131227
  Receipt Date: 20140110
  Transmission Date: 20141002
  Serious: Yes (Hospitalization)
  Sender: FDA-Public Use
  Company Number: DE-ROCHE-1320414

PATIENT
  Age: 59 Year
  Sex: Male
  Weight: 74.3 kg

DRUGS (5)
  1. VEMURAFENIB [Suspect]
     Indication: MALIGNANT MELANOMA
     Route: 048
     Dates: end: 20131212
  2. MESALAZINE [Concomitant]
     Indication: COLITIS ULCERATIVE
     Route: 065
     Dates: start: 2009
  3. LOPEDIUM [Concomitant]
     Indication: DIARRHOEA
     Route: 048
     Dates: start: 20131123, end: 20131125
  4. CONCOR [Concomitant]
     Dosage: INDICATION: STABILISATION OF HEART RATE
     Route: 048
     Dates: start: 201308, end: 20131201
  5. COBIMETINIB [Suspect]
     Indication: MALIGNANT MELANOMA
     Dosage: BLINDED DOSE
     Route: 048
     Dates: end: 20131205

REACTIONS (2)
  - Septic shock [Recovered/Resolved]
  - Pneumonia [Recovered/Resolved]
